FAERS Safety Report 5220589-2 (Version None)
Quarter: 2007Q1

REPORT INFORMATION
  Report Type: 
  Country: None (occurrence: None)
  Receive Date: 20070126
  Receipt Date: 20070122
  Transmission Date: 20070707
  Serious: Yes (Death, Hospitalization)
  Sender: FDA-Public Use
  Company Number: US-BAYER-200710122BWH

PATIENT
  Age: 53 Year
  Sex: Male
  Weight: 57 kg

DRUGS (2)
  1. SORAFENIB [Suspect]
     Indication: NON-SMALL CELL LUNG CANCER
     Dosage: TOTAL DAILY DOSE: 800 MG  UNIT DOSE: 200 MG
     Route: 048
     Dates: start: 20061204, end: 20070109
  2. NORVASC [Concomitant]

REACTIONS (4)
  - DEATH [None]
  - HYPOXIA [None]
  - LUNG INFILTRATION [None]
  - PULMONARY EMBOLISM [None]
